FAERS Safety Report 6165075-0 (Version None)
Quarter: 2009Q2

REPORT INFORMATION
  Report Type: 
  Country: None (occurrence: None)
  Receive Date: 20090421
  Receipt Date: 20090421
  Transmission Date: 20091009
  Serious: Yes (Congenital Anomaly, Other)
  Sender: FDA-Public Use
  Company Number: None

PATIENT
  Age: 48 Year
  Sex: Male
  Weight: 142.8831 kg

DRUGS (4)
  1. ABILIFY [Suspect]
     Indication: SCHIZOPHRENIA
     Dosage: 15MG ONCE PER DAY PO
     Route: 048
     Dates: start: 19930701, end: 20090420
  2. THORAZINE [Concomitant]
  3. RISPERDAL [Concomitant]
  4. GEODON [Concomitant]

REACTIONS (8)
  - ERECTILE DYSFUNCTION [None]
  - PENILE SIZE REDUCED [None]
  - PSYCHIATRIC SYMPTOM [None]
  - SCROTAL DISORDER [None]
  - SELF ESTEEM DECREASED [None]
  - SOCIAL AVOIDANT BEHAVIOUR [None]
  - SUICIDAL IDEATION [None]
  - TESTICULAR ATROPHY [None]
